FAERS Safety Report 4988508-1 (Version None)
Quarter: 2006Q2

REPORT INFORMATION
  Report Type: 
  Country: None (occurrence: None)
  Receive Date: 20060502
  Receipt Date: 20060301
  Transmission Date: 20061013
  Serious: No
  Sender: FDA-Public Use
  Company Number: US-GLAXOSMITHKLINE-A0595756A

PATIENT
  Age: 15 Month
  Sex: Male

DRUGS (2)
  1. AMOXIL [Suspect]
     Dosage: 6ML TWICE PER DAY
     Route: 048
     Dates: start: 20060228, end: 20060301
  2. NO CONCURRENT MEDICATION [Concomitant]

REACTIONS (4)
  - DIARRHOEA [None]
  - MOUTH ULCERATION [None]
  - PYREXIA [None]
  - URTICARIA [None]
